FAERS Safety Report 6631377-4 (Version None)
Quarter: 2010Q1

REPORT INFORMATION
  Report Type: 
  Country: None (occurrence: None)
  Receive Date: 20100311
  Receipt Date: 20100311
  Transmission Date: 20100710
  Serious: No
  Sender: FDA-Public Use
  Company Number: None

PATIENT
  Age: 58 Year
  Sex: Female
  Weight: 58.514 kg

DRUGS (2)
  1. BONIVA [Suspect]
     Indication: OSTEOPENIA
     Dosage: 150 MG ONCE PER MONTH OTHER
     Route: 050
     Dates: start: 20100301, end: 20100301
  2. BONIVA [Suspect]
     Indication: OSTEOPOROSIS
     Dosage: 150 MG ONCE PER MONTH OTHER
     Route: 050
     Dates: start: 20100301, end: 20100301

REACTIONS (18)
  - ABDOMINAL PAIN [None]
  - ABDOMINAL RIGIDITY [None]
  - ARTHRALGIA [None]
  - ASTHENIA [None]
  - BACK PAIN [None]
  - CHEST PAIN [None]
  - CHILLS [None]
  - DEHYDRATION [None]
  - FATIGUE [None]
  - FEELING OF BODY TEMPERATURE CHANGE [None]
  - GAIT DISTURBANCE [None]
  - HEADACHE [None]
  - HYPOPHAGIA [None]
  - IMPAIRED WORK ABILITY [None]
  - MYALGIA [None]
  - PAIN [None]
  - THIRST [None]
  - TREMOR [None]
